FAERS Safety Report 7157886-X (Version None)
Quarter: 2010Q4

REPORT INFORMATION
  Report Type: 
  Country: None (occurrence: None)
  Receive Date: 20101214
  Receipt Date: 20101208
  Transmission Date: 20110411
  Serious: Yes (Other)
  Sender: FDA-Public Use
  Company Number: JP-PFIZER INC-2010065909

PATIENT
  Age: 54 Year
  Sex: Female
  Weight: 62 kg

DRUGS (4)
  1. LIPITOR [Suspect]
     Indication: HYPERCHOLESTEROLAEMIA
     Dosage: 5 MG, 1X/DAY
     Route: 048
     Dates: start: 20091127, end: 20100317
  2. LIPITOR [Suspect]
     Dosage: 10 MG, 1X/DAY
     Route: 048
     Dates: start: 20100317, end: 20100522
  3. BLADDERON [Concomitant]
     Indication: NEUROGENIC BLADDER
     Dosage: 200 MG, 2X/DAY
     Route: 048
     Dates: start: 20090526, end: 20100522
  4. BLADDERON [Concomitant]
     Indication: POLLAKIURIA

REACTIONS (2)
  - HEPATIC FUNCTION ABNORMAL [None]
  - RHABDOMYOLYSIS [None]
